FAERS Safety Report 7528355-X (Version None)
Quarter: 2011Q2

REPORT INFORMATION
  Report Type: 
  Country: None (occurrence: None)
  Receive Date: 20110607
  Receipt Date: 20101025
  Transmission Date: 20111010
  Serious: No
  Sender: FDA-Public Use
  Company Number: US-ASTRAZENECA-2010SE51188

PATIENT
  Sex: Female

DRUGS (2)
  1. PRILOSEC OTC [Suspect]
     Indication: DYSPEPSIA
     Route: 048
     Dates: end: 20101023
  2. NAPROXEN (ALEVE) [Concomitant]

REACTIONS (2)
  - PAIN IN EXTREMITY [None]
  - INCORRECT DRUG ADMINISTRATION DURATION [None]
